FAERS Safety Report 7564978-X (Version None)
Quarter: 2011Q2

REPORT INFORMATION
  Report Type: 
  Country: None (occurrence: None)
  Receive Date: 20110622
  Receipt Date: 20110427
  Transmission Date: 20111010
  Serious: Yes (Other)
  Sender: FDA-Public Use
  Company Number: US-MYLANLABS-2011S1004874

PATIENT
  Age: 46 Year
  Sex: Male

DRUGS (7)
  1. FOLIC ACID [Concomitant]
  2. TRAZODONE HCL [Concomitant]
  3. FERROUS SULFATE TAB [Concomitant]
  4. DILANTIN [Concomitant]
  5. CLOZAPINE [Suspect]
     Indication: SCHIZOPHRENIA
     Route: 048
     Dates: start: 20100101, end: 20110426
  6. VITAMIN TAB [Concomitant]
  7. OMEPRAZOLE [Concomitant]

REACTIONS (2)
  - GRANULOCYTOPENIA [None]
  - LEUKOPENIA [None]
